FAERS Safety Report 8134608-7 (Version None)
Quarter: 2012Q1

REPORT INFORMATION
  Report Type: 
  Country: None (occurrence: None)
  Receive Date: 20120214
  Receipt Date: 20120131
  Transmission Date: 20120608
  Serious: Yes (Other)
  Sender: FDA-Public Use
  Company Number: US-UCBSA-050735

PATIENT
  Age: 34 Year
  Sex: Female
  Weight: 74.8 kg

DRUGS (13)
  1. PRISTIQ [Suspect]
     Dosage: EXTENDED RELEASE TABLET 100 MG TO 50 MG WEANING DOSE
     Route: 048
     Dates: start: 20110101, end: 20110101
  2. PHENERGAN [Suspect]
     Indication: VOMITING PROJECTILE
     Dates: start: 20110101
  3. PRISTIQ [Suspect]
     Dosage: EXTENDED RELEASE TABLET 50 MG SPLITTED
     Route: 048
     Dates: start: 20110101
  4. ZOFRAN [Suspect]
     Indication: NAUSEA
     Dates: start: 20110101
  5. PRISTIQ [Suspect]
     Indication: INSOMNIA
     Dosage: EXTENDED RELEASE TABLET
     Route: 048
     Dates: start: 20110601
  6. PHENERGAN [Suspect]
     Indication: NAUSEA
     Dates: start: 20110101
  7. XANAX [Suspect]
     Indication: SLEEP DISORDER
     Route: 048
  8. PRISTIQ [Suspect]
     Dosage: EXTENDED RELEASE TABLET 100 MG TO 50 MG WEANING DOSE
     Route: 048
     Dates: start: 20110101, end: 20110101
  9. LORTAB [Suspect]
     Indication: HEADACHE
  10. ZOFRAN [Suspect]
     Indication: VOMITING PROJECTILE
     Dates: start: 20110101
  11. BUTALBITAL ACETAMINOPHEN CAFFEINE [Suspect]
     Indication: HEADACHE
  12. PRISTIQ [Suspect]
     Indication: STRESS AT WORK
     Dosage: EXTENDED RELEASE TABLET
     Route: 048
     Dates: start: 20110601
  13. PRISTIQ [Suspect]
     Dosage: EXTENDED RELEASE TABLET 50 MG SPLITTED
     Route: 048
     Dates: start: 20110101

REACTIONS (9)
  - NAUSEA [None]
  - VOMITING PROJECTILE [None]
  - HYPOAESTHESIA [None]
  - AGGRESSION [None]
  - DRUG INEFFECTIVE [None]
  - MEMORY IMPAIRMENT [None]
  - DISTURBANCE IN ATTENTION [None]
  - ANGER [None]
  - HEADACHE [None]
